FAERS Safety Report 25530699 (Version 1)
Quarter: 2025Q3

REPORT INFORMATION
  Report Type: Report from Study
  Country: CN (occurrence: CN)
  Receive Date: 20250708
  Receipt Date: 20250708
  Transmission Date: 20251020
  Serious: Yes (Other)
  Sender: BAYER HEALTHCARE PHARMACEUTICALS INC.
  Company Number: CN-BAYER-2025A089453

PATIENT
  Age: 73 Year
  Sex: Male

DRUGS (1)
  1. NEXAVAR [Suspect]
     Active Substance: SORAFENIB
     Indication: Renal cell carcinoma

REACTIONS (3)
  - Cardiac discomfort [Unknown]
  - Gait inability [Unknown]
  - Ear disorder [Unknown]
